FAERS Safety Report 4402237-4 (Version None)
Quarter: 2004Q3

REPORT INFORMATION
  Report Type: 
  Country: None (occurrence: None)
  Receive Date: 20040720
  Receipt Date: 20040712
  Transmission Date: 20050211
  Serious: Yes (Other)
  Sender: FDA-Public Use
  Company Number: GB-BRISTOL-MYERS SQUIBB COMPANY-12639803

PATIENT
  Age: 49 Year
  Sex: Male

DRUGS (32)
  1. SINEMET [Suspect]
     Route: 048
  2. ATENOLOL [Concomitant]
  3. CO-PROXAMOL [Concomitant]
  4. CO-DYDRAMOL [Concomitant]
  5. TRAXAM [Concomitant]
  6. MOBIC [Concomitant]
  7. PROZAC [Concomitant]
  8. KEMADRIN [Concomitant]
  9. GAMANIL [Concomitant]
  10. PROCHLORPERAZINE [Concomitant]
  11. SENNA [Concomitant]
  12. ARTHROTEC [Concomitant]
  13. CLARITHROMYCIN [Concomitant]
  14. AUGMENTIN '125' [Concomitant]
  15. TRAMADOL [Concomitant]
  16. CO-CODAMOL [Concomitant]
     Dosage: 8/500 AND 30/500
  17. GAVISCON [Concomitant]
     Dosage: LIQUID
  18. PROCHLORPERAZINE MALEATE [Concomitant]
  19. CYCLIMORPH [Concomitant]
  20. RANITIDINE [Concomitant]
  21. ACETAMINOPHEN [Concomitant]
  22. NICOTINE [Concomitant]
     Dosage: PATCHES
  23. ZITHROMAX [Concomitant]
  24. TRANEXAMIC ACID [Concomitant]
  25. LANSOPRAZOLE [Concomitant]
  26. DOMPERIDONE [Concomitant]
  27. PARIET [Concomitant]
  28. ASPIRIN [Concomitant]
     Dosage: ASPIRIN DISPERSIBLE
  29. LISINOPRIL [Concomitant]
  30. LACTULOSE [Concomitant]
  31. ZOPICLONE [Concomitant]
  32. DIETHYLAMINE SALICYLATE [Concomitant]

REACTIONS (3)
  - GASTRIC ULCER PERFORATION [None]
  - MYOCARDIAL INFARCTION [None]
  - PANCREATITIS [None]
